FAERS Safety Report 9217805 (Version 2)
Quarter: 2013Q2

REPORT INFORMATION
  Report Type: Spontaneous
  Country: FR (occurrence: FR)
  Receive Date: 20130408
  Receipt Date: 20130408
  Transmission Date: 20140414
  Serious: Yes (Other)
  Sender: FDA-Public Use
  Company Number: FR-TEVA-349803ISR

PATIENT
  Sex: Male

DRUGS (3)
  1. AZILECT [Suspect]
     Indication: PARKINSON^S DISEASE
     Dosage: 1 DOSAGE FORMS DAILY;
     Route: 048
     Dates: start: 201112
  2. SIFROL [Interacting]
     Indication: PARKINSON^S DISEASE
     Dosage: 4 DOSAGE FORMS DAILY;
     Route: 048
     Dates: start: 2008
  3. STALEVO [Interacting]
     Indication: PARKINSON^S DISEASE
     Dosage: 3 DOSAGE FORMS DAILY;
     Route: 048
     Dates: start: 2008

REACTIONS (3)
  - Hypersexuality [Not Recovered/Not Resolved]
  - Pathological gambling [Not Recovered/Not Resolved]
  - Drug interaction [Not Recovered/Not Resolved]
